FAERS Safety Report 7287751-9 (Version None)
Quarter: 2011Q1

REPORT INFORMATION
  Report Type: 
  Country: None (occurrence: None)
  Receive Date: 20110208
  Receipt Date: 20110208
  Transmission Date: 20110831
  Serious: No
  Sender: FDA-Public Use
  Company Number: None

PATIENT
  Age: 69 Year
  Sex: Male
  Weight: 111.5849 kg

DRUGS (1)
  1. VICTOZA [Suspect]
     Indication: TYPE 2 DIABETES MELLITUS
     Dosage: 1.2 MG DAILY SQ
     Dates: start: 20101101, end: 20110104

REACTIONS (3)
  - NAUSEA [None]
  - HEPATIC ENZYME INCREASED [None]
  - DIARRHOEA [None]
